FAERS Safety Report 9074720 (Version 1)
Quarter: 2013Q1

REPORT INFORMATION
  Report Type: Report from Study
  Country: US (occurrence: US)
  Receive Date: 20130128
  Receipt Date: 20130128
  Transmission Date: 20140127
  Serious: No
  Sender: FDA-Public Use
  Company Number: US-ABBOTT-12P-163-0916818-00

PATIENT
  Age: 81 Year
  Sex: Male

DRUGS (11)
  1. HUMIRA 40 MG/0.8 ML PEN [Suspect]
     Indication: PSORIASIS
     Dates: start: 20120303
  2. ACTOS [Concomitant]
     Indication: TYPE 2 DIABETES MELLITUS
     Route: 048
  3. NIASPAN [Concomitant]
     Indication: BLOOD CHOLESTEROL INCREASED
     Route: 048
  4. SIMVASTATIN [Concomitant]
     Indication: BLOOD CHOLESTEROL INCREASED
     Route: 048
  5. FLUOXETINE [Concomitant]
     Indication: BIPOLAR I DISORDER
     Route: 048
  6. OXCARBAZEPINE [Concomitant]
     Indication: BIPOLAR I DISORDER
     Route: 048
  7. PROPRANOLOL [Concomitant]
     Indication: HYPERTENSION
  8. LUMIGAN [Concomitant]
     Indication: GLAUCOMA
  9. BABY ASPIRIN [Concomitant]
     Indication: CARDIAC DISORDER
  10. CITRACAL [Concomitant]
     Indication: ABDOMINAL DISCOMFORT
     Route: 048
  11. PANTOPRAZOLE [Concomitant]
     Indication: GASTROOESOPHAGEAL REFLUX DISEASE

REACTIONS (1)
  - Injection site bruising [Not Recovered/Not Resolved]
